FAERS Safety Report 7764345-X (Version None)
Quarter: 2011Q3

REPORT INFORMATION
  Report Type: 
  Country: None (occurrence: None)
  Receive Date: 20110919
  Receipt Date: 20110905
  Transmission Date: 20111222
  Serious: Yes (Hospitalization)
  Sender: FDA-Public Use
  Company Number: 1000010156

PATIENT
  Age: 85 Year
  Sex: Male

DRUGS (7)
  1. ESCITALOPRAM [Suspect]
     Dosage: 15 MG (15 MG, 1 IN 1 D), ORAL
     Route: 048
     Dates: end: 20091012
  2. SPIRONOLACTONE [Concomitant]
  3. METEOSPASMYL ( ALVERINE CITRATE, SIMETICONE) [Concomitant]
  4. GINKOR( GINKO BILOBA, TROXIRUTIN, HEPTAMINOL) [Concomitant]
  5. ESCITALOPRAM [Suspect]
     Dosage: 15 MG (15 MG, 1 IN 1 D), ORAL
     Route: 048
     Dates: start: 20090101, end: 20090101
  6. EXELON [Suspect]
     Dosage: 4.5 MG (4.5 MG, 1 IN 1 D), TRANSDERMAL  4.6 MG (4.6 MG, 1 IN 1 D), TRANSDERMAL
     Route: 062
     Dates: start: 20090101, end: 20090101
  7. EXELON [Suspect]
     Dosage: 9.5 MG (9.5 MG, 1 IN 24 HR), TRANDERMAL
     Route: 062
     Dates: end: 20091012

REACTIONS (8)
  - AGGRESSION [None]
  - PARTIAL SEIZURES [None]
  - ANXIETY [None]
  - STATUS EPILEPTICUS [None]
  - CONVULSION [None]
  - AGITATION [None]
  - SUICIDAL IDEATION [None]
  - CONFUSIONAL STATE [None]
